FAERS Safety Report 6411527-5 (Version None)
Quarter: 2009Q4

REPORT INFORMATION
  Report Type: 
  Country: None (occurrence: None)
  Receive Date: 20091023
  Receipt Date: 20091012
  Transmission Date: 20100525
  Serious: Yes (Death)
  Sender: FDA-Public Use
  Company Number: DE-JNJFOC-20090907233

PATIENT
  Age: 41 Year
  Sex: Male
  Weight: 114 kg

DRUGS (3)
  1. FENTANYL TRANSDERMAL SYSTEM [Suspect]
     Indication: INTENTIONAL DRUG MISUSE
     Route: 065
  2. ALCOHOL [Suspect]
     Indication: DRUG USE FOR UNKNOWN INDICATION
     Route: 065
  3. CANNABIS SATIVA [Suspect]
     Indication: DRUG USE FOR UNKNOWN INDICATION
     Route: 065

REACTIONS (4)
  - ALCOHOL POISONING [None]
  - DRUG TOXICITY [None]
  - INTENTIONAL DRUG MISUSE [None]
  - NARCOTIC INTOXICATION [None]
